FAERS Safety Report 12765257 (Version 3)
Quarter: 2016Q4

REPORT INFORMATION
  Report Type: Spontaneous
  Country: UA (occurrence: UA)
  Receive Date: 20160921
  Receipt Date: 20161105
  Transmission Date: 20170207
  Serious: Yes (Hospitalization)
  Sender: FDA-Public Use
  Company Number: UA-GLENMARK GENERICS (EUROPE) LTD.-2016GMK024239

PATIENT

DRUGS (4)
  1. PULMICORT TURBUHALER [Concomitant]
     Active Substance: BUDESONIDE
     Dosage: 250 ?G, BID FOR 10 DAYS, THEN ONCE DAILY FOR 14 DAYS
     Route: 045
  2. PULMICORT TURBUHALER [Concomitant]
     Active Substance: BUDESONIDE
     Indication: ASTHMA
     Dosage: 500 ?G, BID
     Route: 045
  3. GLEMONT CHEWABLE TABLETS [Suspect]
     Active Substance: MONTELUKAST SODIUM
     Indication: ASTHMA
     Dosage: 1 DF, QD
     Route: 048
     Dates: start: 20160815
  4. BERODUAL [Concomitant]
     Active Substance: FENOTEROL HYDROBROMIDE\IPRATROPIUM BROMIDE
     Indication: PRODUCT USED FOR UNKNOWN INDICATION
     Dosage: 10 DROPS ON DEMAND, TWICE DAILY FOR 10 DAYS, THEN ONCE DAILY FOR 14 DAYS
     Route: 045

REACTIONS (10)
  - Rash papular [Recovered/Resolved]
  - Epstein-Barr virus infection [Recovered/Resolved]
  - Decreased appetite [Recovered/Resolved]
  - Pyrexia [Recovered/Resolved]
  - Toxic skin eruption [Recovered/Resolved]
  - Mucosal erosion [Recovered/Resolved]
  - Drug-induced liver injury [Recovered/Resolved]
  - Respiratory failure [Recovered/Resolved]
  - Faeces pale [Recovered/Resolved]
  - Stevens-Johnson syndrome [Recovered/Resolved]

NARRATIVE: CASE EVENT DATE: 20160825
